FAERS Safety Report 9782554 (Version 1)
Quarter: 2013Q4

REPORT INFORMATION
  Report Type: Spontaneous
  Country: IT (occurrence: None)
  Receive Date: 20131220
  Receipt Date: 20131220
  Transmission Date: 20140711
  Serious: Yes (Other)
  Sender: FDA-Public Use
  Company Number: DSM-2013-01195

PATIENT
  Age: 57 Year
  Sex: Male

DRUGS (2)
  1. PLAUNAC [Suspect]
     Indication: PRODUCT USED FOR UNKNOWN INDICATION
     Route: 048
     Dates: start: 20121008
  2. ATORVASTATIN CALCIUM TRIHYDRATE (ATORVASTATIN CALCIUM) [Concomitant]

REACTIONS (1)
  - Syncope [None]
